FAERS Safety Report 15332019 (Version 1)
Quarter: 2018Q4

REPORT INFORMATION
  Report Type: Spontaneous
  Country: US (occurrence: US)
  Receive Date: 20180829
  Receipt Date: 20180829
  Transmission Date: 20190204
  Serious: Yes (Other)
  Sender: FDA-Public Use
  Company Number: US-PFIZER INC-2018337711

PATIENT
  Sex: Female
  Weight: 58.96 kg

DRUGS (7)
  1. LORAZEPAM. [Suspect]
     Active Substance: LORAZEPAM
     Indication: SCHIZOPHRENIA
     Dosage: 2 MG, 3X/DAY
     Route: 048
  2. NAVANE [Suspect]
     Active Substance: THIOTHIXENE
     Dosage: UNK
  3. THORAZINE [Suspect]
     Active Substance: CHLORPROMAZINE
     Dosage: UNK
  4. RISPERIDONE. [Concomitant]
     Active Substance: RISPERIDONE
     Dosage: UNK
  5. SPERIDON PLUS [Suspect]
     Active Substance: RISPERIDONE\TRIHEXYPHENIDYL HYDROCHLORIDE
     Dosage: UNK
  6. COGENTIN [Suspect]
     Active Substance: BENZTROPINE MESYLATE
     Dosage: UNK
  7. SALAZINE [Suspect]
     Active Substance: SULFASALAZINE
     Dosage: UNK

REACTIONS (10)
  - Flushing [Not Recovered/Not Resolved]
  - Confusional state [Unknown]
  - Raymond-Cestan syndrome [Unknown]
  - General physical health deterioration [Unknown]
  - Asthenia [Not Recovered/Not Resolved]
  - Toxicity to various agents [Unknown]
  - Motor dysfunction [Unknown]
  - Gait disturbance [Unknown]
  - Amnesia [Unknown]
  - Fall [Unknown]
